FAERS Safety Report 6401738-7 (Version None)
Quarter: 2009Q4

REPORT INFORMATION
  Report Type: 
  Country: None (occurrence: None)
  Receive Date: 20091015
  Receipt Date: 20091007
  Transmission Date: 20100525
  Serious: Yes (Hospitalization, Other)
  Sender: FDA-Public Use
  Company Number: US-ROCHE-661578

PATIENT
  Sex: Female
  Weight: 53.5 kg

DRUGS (3)
  1. BONIVA [Suspect]
     Indication: OSTEOPOROSIS
     Route: 065
     Dates: start: 20090429
  2. FISH OIL [Concomitant]
  3. GLUCOSAMINE [Concomitant]

REACTIONS (13)
  - ABDOMINAL PAIN UPPER [None]
  - ARTHRALGIA [None]
  - BACK PAIN [None]
  - BLOOD PRESSURE ABNORMAL [None]
  - BONE PAIN [None]
  - CYSTITIS [None]
  - DYSPHAGIA [None]
  - FOREIGN BODY [None]
  - INCONTINENCE [None]
  - MYALGIA [None]
  - PAIN IN JAW [None]
  - URINARY TRACT INFECTION [None]
  - VOMITING [None]
